FAERS Safety Report 6443926-X (Version None)
Quarter: 2009Q4

REPORT INFORMATION
  Report Type: 
  Country: None (occurrence: None)
  Receive Date: 20091113
  Receipt Date: 20091027
  Transmission Date: 20100525
  Serious: Yes (Hospitalization)
  Sender: FDA-Public Use
  Company Number: B0602172A

PATIENT

DRUGS (5)
  1. PACLITAXEL [Suspect]
     Indication: OESOPHAGEAL CARCINOMA
     Dosage: 175 MG/M2
  2. DEXAMETHASONE [Suspect]
     Indication: PROPHYLAXIS
     Dosage: 20 MG / INTRAVENOUS
     Route: 042
  3. NEDAPLATIN (FORMULATION UNKNOWN) (NEDAPLATIN) [Suspect]
     Indication: OESOPHAGEAL CARCINOMA
     Dosage: 80 MG/M2
  4. PROMETHAZINE [Suspect]
     Dosage: 25 MG / INTRAVENOUS
     Route: 042
  5. TAGAMET [Suspect]
     Dosage: 400 MG / INTRAVENOUS
     Route: 042

REACTIONS (1)
  - INFECTION [None]
